FAERS Safety Report 8963850 (Version 1)
Quarter: 2012Q4

REPORT INFORMATION
  Report Type: 
  Country: BR (occurrence: BR)
  Receive Date: 20121214
  Receipt Date: 20121214
  Transmission Date: 20130627
  Serious: Yes (Other)
  Sender: FDA-Public Use
  Company Number: BR-PFIZER INC-2012314481

PATIENT
  Age: 68 Year
  Sex: Female

DRUGS (8)
  1. FRONTAL XR [Suspect]
     Indication: SLEEP DISORDER
     Dosage: 2 mg (one tablet), 1x/day
     Route: 048
     Dates: start: 20120911
  2. FRONTAL [Suspect]
     Indication: SLEEP DISORDER
     Dosage: 2 mg (one tablet), 1x/day
     Route: 048
     Dates: start: 20120911
  3. CLINFAR [Concomitant]
     Indication: HIGH CHOLESTEROL
     Dosage: UNK
  4. GLIFAGE XR [Concomitant]
     Indication: DIABETES
     Dosage: UNK
  5. HYDROCHLOROTHIAZIDE [Concomitant]
     Indication: BLOOD PRESSURE INCREASED
     Dosage: UNK
  6. LOSARTAN [Concomitant]
     Indication: BLOOD PRESSURE INCREASED
     Dosage: UNK
  7. FLUOXETINE [Concomitant]
     Indication: DIABETES
     Dosage: UNK
  8. GLIMEPIRIDE [Concomitant]
     Indication: DIABETES
     Dosage: UNK

REACTIONS (2)
  - Cataract [Unknown]
  - Off label use [Unknown]
